FAERS Safety Report 8474807-8 (Version None)
Quarter: 2012Q2

REPORT INFORMATION
  Report Type: 
  Country: None (occurrence: None)
  Receive Date: 20120628
  Receipt Date: 20120619
  Transmission Date: 20120825
  Serious: Yes (Other)
  Sender: FDA-Public Use
  Company Number: AU-ASTRAZENECA-2012SE40903

PATIENT
  Sex: Female

DRUGS (1)
  1. ZOLADEX [Suspect]
     Indication: LUNG NEOPLASM MALIGNANT
     Route: 058
     Dates: start: 20120101

REACTIONS (2)
  - PNEUMOTHORAX [None]
  - INTENTIONAL DRUG MISUSE [None]
